FAERS Safety Report 6703831-8 (Version None)
Quarter: 2010Q2

REPORT INFORMATION
  Report Type: 
  Country: None (occurrence: None)
  Receive Date: 20100428
  Receipt Date: 20100413
  Transmission Date: 20101027
  Serious: Yes (Other)
  Sender: FDA-Public Use
  Company Number: AUR-APL-2010-01078

PATIENT
  Age: 67 Year
  Sex: Male
  Weight: 101 kg

DRUGS (3)
  1. SIMVASTATIN [Suspect]
     Dosage: 1DF, DAILY ORAL
     Route: 048
     Dates: start: 20090601
  2. PLAVIX [Suspect]
     Indication: CORONARY ARTERY DISEASE
     Dosage: 1DF, DAILY, ORAL
     Route: 048
     Dates: start: 20090601
  3. ASPIRIN [Suspect]
     Indication: ACUTE CORONARY SYNDROME
     Dosage: 1DF, DAILY, ORAL
     Dates: start: 20090601

REACTIONS (2)
  - HAEMOGLOBIN DECREASED [None]
  - MUSCLE HAEMORRHAGE [None]
